FAERS Safety Report 8932566 (Version 2)
Quarter: 2013Q1

REPORT INFORMATION
  Report Type: Spontaneous
  Country: US (occurrence: None)
  Receive Date: 20121119
  Receipt Date: 20121219
  Transmission Date: 20140127
  Serious: Yes (Disabling, Other)
  Sender: FDA-Public Use
  Company Number: CRC-12-556

PATIENT
  Sex: Male

DRUGS (1)
  1. OLANZAPINE [Suspect]
     Indication: AFFECTIVE DISORDER

REACTIONS (3)
  - Tardive dyskinesia [None]
  - Mental impairment [None]
  - Panic attack [None]
